FAERS Safety Report 19654670 (Version 15)
Quarter: 2022Q2

REPORT INFORMATION
  Report Type: Report from Study
  Country: US (occurrence: US)
  Receive Date: 20210804
  Receipt Date: 20220426
  Transmission Date: 20220721
  Serious: Yes (Hospitalization, Other)
  Sender: FDA-Public Use
  Company Number: NVSC2021US173181

PATIENT
  Age: 12 Year
  Sex: Female
  Weight: 44.399 kg

DRUGS (9)
  1. TREPROSTINIL [Suspect]
     Active Substance: TREPROSTINIL
     Indication: Pulmonary arterial hypertension
     Dosage: 105.5 NG/KG/MIN, CONT
     Route: 058
     Dates: start: 20210715
  2. TREPROSTINIL [Suspect]
     Active Substance: TREPROSTINIL
     Dosage: 57.9 NG/KG/MIN, CONT
     Route: 058
     Dates: start: 20210715
  3. TREPROSTINIL [Suspect]
     Active Substance: TREPROSTINIL
     Dosage: 72.3 NG/KG/MIN, CONT
     Route: 058
  4. TREPROSTINIL [Suspect]
     Active Substance: TREPROSTINIL
     Dosage: 76.5 NG/KG/MIN, CONT
     Route: 058
  5. TREPROSTINIL [Suspect]
     Active Substance: TREPROSTINIL
     Dosage: 0.024 ML
     Route: 058
  6. TREPROSTINIL [Suspect]
     Active Substance: TREPROSTINIL
     Dosage: 90.5 NG/KG/MIN, CONT
     Route: 058
  7. TREPROSTINIL [Suspect]
     Active Substance: TREPROSTINIL
     Dosage: 97.5 NG/KG/MIN, CONT
     Route: 058
  8. BOSENTAN [Concomitant]
     Active Substance: BOSENTAN
     Indication: Product used for unknown indication
     Dosage: UNK
     Route: 065
  9. SILDENAFIL CITRATE [Concomitant]
     Active Substance: SILDENAFIL CITRATE
     Indication: Product used for unknown indication
     Dosage: UNK
     Route: 065

REACTIONS (17)
  - Pulmonary hypertension [Unknown]
  - Haemoptysis [Unknown]
  - Pulmonary haemorrhage [Unknown]
  - Haemorrhage [Unknown]
  - Haematemesis [Unknown]
  - Pneumothorax [Unknown]
  - Abdominal discomfort [Recovered/Resolved]
  - Illness [Recovered/Resolved]
  - Sinusitis [Unknown]
  - Pyrexia [Recovered/Resolved]
  - Gastroenteritis viral [Unknown]
  - Dehydration [Unknown]
  - Seasonal allergy [Unknown]
  - Cough [Unknown]
  - Respiratory rate increased [Recovered/Resolved]
  - Vomiting [Unknown]
  - Infusion site infection [Recovered/Resolved]

NARRATIVE: CASE EVENT DATE: 20210727
